FAERS Safety Report 15442904 (Version 1)
Quarter: 2018Q3

REPORT INFORMATION
  Report Type: Report from Study
  Country: US (occurrence: US)
  Receive Date: 20180928
  Receipt Date: 20180928
  Transmission Date: 20181010
  Serious: Yes (Hospitalization)
  Sender: FDA-Public Use
  Company Number: US-PFIZER INC-2018379264

PATIENT
  Age: 17 Year
  Sex: Female
  Weight: 48 kg

DRUGS (17)
  1. CYCLOPHOSPHAMIDE. [Suspect]
     Active Substance: CYCLOPHOSPHAMIDE
     Dosage: 200 MG/M2, CYCLIC(OVER 15?30 MINUTES ON DAYS 1?5; CYCLES 2, 4 AND 6 (CYCLE= 21 DAYS))
     Route: 042
     Dates: end: 20180508
  2. DEXAMETHASONE. [Suspect]
     Active Substance: DEXAMETHASONE
     Indication: ANAPLASTIC LARGE CELL LYMPHOMA T- AND NULL-CELL TYPES
     Dosage: 5 MG/M2, CYCLIC(QD ON DAYS 1?2. PROPHASE (CYCLE = 5 DAYS))
     Route: 048
     Dates: start: 20180407
  3. DOXORUBICIN HCL [Suspect]
     Active Substance: DOXORUBICIN HYDROCHLORIDE
     Indication: ANAPLASTIC LARGE CELL LYMPHOMA T- AND NULL-CELL TYPES
     Dosage: 25 MG/M2, CYCLIC(OVER 1?15 MIN ON DAYS 4 AND 5; CYCLES 2, 4 AND 6 (CYCLE= 21 DAYS))
     Route: 042
     Dates: end: 20180508
  4. CYTARABINE. [Suspect]
     Active Substance: CYTARABINE
     Dosage: 150 MG/M2, CYCLIC(OVER 1?30 MINUTES Q12 HOURS ON DAYS 4 AND 5 (TOTAL 4 DOSES); CYCLES 1, 3 AND 5)
     Route: 042
  5. DEXAMETHASONE. [Suspect]
     Active Substance: DEXAMETHASONE
     Dosage: 5 MG/M2, CYCLIC(BID ON DAYS 1?5; CYCLES 2, 4 AND 6 (CYCLE= 21 DAYS))
     Route: 048
     Dates: end: 20180508
  6. CRIZOTINIB [Suspect]
     Active Substance: CRIZOTINIB
     Dosage: 165 MG/M2, CYCLIC(BID ON DAYS 1?21; CYCLES 2, 4 AND 6 (CYCLE= 21 DAYS))
     Route: 048
     Dates: end: 20180509
  7. CYCLOPHOSPHAMIDE. [Suspect]
     Active Substance: CYCLOPHOSPHAMIDE
     Indication: ANAPLASTIC LARGE CELL LYMPHOMA T- AND NULL-CELL TYPES
     Dosage: 200 MG/M2, CYCLIC(OVER 15?30 MINUTES ON DAYS 1 AND 2; PROPHASE (CYCLE = 5 DAYS))
     Route: 042
     Dates: start: 20180407
  8. DEXAMETHASONE. [Suspect]
     Active Substance: DEXAMETHASONE
     Dosage: 5 MG/M2, CYCLIC(BID ON DAYS 1?5, CYCLES 1, 3 AND 5 (CYCLE= 21 DAYS))
     Route: 048
  9. ETOPOSIDE. [Suspect]
     Active Substance: ETOPOSIDE
     Indication: ANAPLASTIC LARGE CELL LYMPHOMA T- AND NULL-CELL TYPES
     Dosage: 100 MG/M2, CYCLIC(OVER 2 HOURS ON DAYS 4 AND 5; CYCLES 1, 3 AND 5 (CYCLE= 21 DAYS))
     Route: 042
     Dates: start: 20180412
  10. CRIZOTINIB [Suspect]
     Active Substance: CRIZOTINIB
     Indication: ANAPLASTIC LARGE CELL LYMPHOMA T- AND NULL-CELL TYPES
     Dosage: 165 MG/M2, CYCLIC (2X/DAY, ON DAYS 1?21; CYCLES 1, 3 AND 5 (CYCLE= 21 DAYS))
     Route: 048
     Dates: start: 20180425
  11. METHOTREXATE SODIUM. [Suspect]
     Active Substance: METHOTREXATE SODIUM
     Dosage: 3000 MG/M2, CYCLIC(OVER 3 HOURS ON DAY 1; CYCLES 1, 3 AND 5 (CYCLE= 21 DAYS))
     Route: 042
  12. METHOTREXATE SODIUM. [Suspect]
     Active Substance: METHOTREXATE SODIUM
     Indication: ANAPLASTIC LARGE CELL LYMPHOMA T- AND NULL-CELL TYPES
     Dosage: UNK, CYCLIC(7.5?12MG IT ON DAY 1 (AGE BASED DOSING); PROPHASE (CYCLE = 5 DAYS))
     Dates: start: 20180407
  13. METHOTREXATE SODIUM. [Suspect]
     Active Substance: METHOTREXATE SODIUM
     Dosage: 3000 MG/M2, CYCLIC(OVER 3 HOURS ON DAY 1; CYCLES 2, 4 AND 6 (CYCLE= 21 DAYS))
     Route: 042
     Dates: end: 20180504
  14. HYDROCORTISONE. [Suspect]
     Active Substance: HYDROCORTISONE
     Indication: ANAPLASTIC LARGE CELL LYMPHOMA T- AND NULL-CELL TYPES
     Dosage: UNK, CYCLIC(7.5?12MG IT ON DAY 1 (AGE BASED DOSING); PROPHASE (CYCLE = 5 DAYS))
     Dates: start: 20180407
  15. IFOSFAMIDE. [Suspect]
     Active Substance: IFOSFAMIDE
     Indication: ANAPLASTIC LARGE CELL LYMPHOMA T- AND NULL-CELL TYPES
     Dosage: 800 MG/M2, CYCLIC(OVER 60 MIN ON DAYS 1?5; CYCLES 1, 3 AND 5 (CYCLE= 21 DAYS))
     Route: 042
     Dates: start: 20180412
  16. CYTARABINE. [Suspect]
     Active Substance: CYTARABINE
     Indication: ANAPLASTIC LARGE CELL LYMPHOMA T- AND NULL-CELL TYPES
     Dosage: UNK, CYCLIC(15?24MG IT ON DAY 1 (AGE BASED DOSING); PROPHASE (CYCLE = 5 DAYS))
     Dates: start: 20180407
  17. DEXAMETHASONE. [Suspect]
     Active Substance: DEXAMETHASONE
     Dosage: 5 MG/M2, CYCLIC(BID ON DAYS 3?5, PROPHASE (CYCLE = 5 DAYS))
     Route: 048

REACTIONS (3)
  - Stomatitis [Not Recovered/Not Resolved]
  - Syncope [Not Recovered/Not Resolved]
  - Nausea [Not Recovered/Not Resolved]

NARRATIVE: CASE EVENT DATE: 20180509
